FAERS Safety Report 10363146 (Version 1)
Quarter: 2014Q1

REPORT INFORMATION
  Report Type: Spontaneous
  Country: US (occurrence: None)
  Receive Date: 20140306
  Receipt Date: 20140306
  Transmission Date: 20141002
  Serious: Yes (Other)
  Sender: FDA-Public Use
  Company Number: 163-21880-13074264

PATIENT
  Age: 73 Year
  Sex: Female
  Weight: 77.6 kg

DRUGS (21)
  1. REVLIMID (LENALIDOMIDE) (5 MILLIGRAM, CAPSULES) [Suspect]
     Indication: MYELODYSPLASTIC SYNDROME
     Route: 048
     Dates: start: 201212
  2. ADVAIR DISKUS [Concomitant]
  3. BUMEX (BUMETANIDE) [Concomitant]
  4. IMDUR (ISOSORBIDE MONONITRATE) [Concomitant]
  5. CELEXA (CITALOPRAM HYDROBROMIDE) [Concomitant]
  6. PRILOSEC (OMEPRAZOLE) [Concomitant]
  7. SYNTHROID (LEVOTHYROXINE SODIUM) [Concomitant]
  8. HYDROCODONE-ACETAMINOPHEN (VICODIN) [Concomitant]
  9. BYSTOLIC (NEBIVOLOL HYDROCHLORIDE) [Concomitant]
  10. ULORIC (FEBUXOSTAT) [Concomitant]
  11. CLONIDINE HCL (CLONIDINE HYDROCHLORIDE) [Concomitant]
  12. JANUVIA (SITAGLIPTIN PHOSPHATE) [Concomitant]
  13. FENOFIBRATE MICRONIZED (FENOFIBRATE) [Concomitant]
  14. VITAMIN B12 (CYANOCOBALAMIN) [Concomitant]
  15. VITAMIN D (ERGOCALCIFEROL) [Concomitant]
  16. LEVEMIR FLEXPEN (INSULIN DETEMIR) [Concomitant]
  17. HYDRALAZINE HCL (HYDRALAZINE HYDROCHLORIDE) [Concomitant]
  18. PROCRIT (ERYTHROPOIETIN) [Concomitant]
  19. TIAZAC (DILTIAZEM HYDROCHLORIDE) [Concomitant]
  20. SPIRIVA (TIOTROPIUM BROMIDE) [Concomitant]
  21. PREDNISONE (PREDNISONE) [Concomitant]

REACTIONS (1)
  - Thrombosis [None]
